FAERS Safety Report 6071493-1 (Version None)
Quarter: 2009Q1

REPORT INFORMATION
  Report Type: 
  Country: None (occurrence: None)
  Receive Date: 20090209
  Receipt Date: 20090209
  Transmission Date: 20090719
  Serious: No
  Sender: FDA-Public Use
  Company Number: None

PATIENT
  Age: 57 Year
  Sex: Female
  Weight: 79.3795 kg

DRUGS (2)
  1. VERAMYST [Suspect]
     Indication: SINUSITIS
     Dosage: 1 SPRAY EA NOSTRIL 2 X DAY NASAL
     Route: 045
     Dates: start: 20081130
  2. VERAMYST [Suspect]
     Indication: SINUSITIS
     Dosage: 1 SPRAY EA NOSTRIL 2 X DAY NASAL
     Route: 045
     Dates: start: 20081222

REACTIONS (1)
  - PUPIL FIXED [None]
